FAERS Safety Report 5884523-4 (Version None)
Quarter: 2008Q3

REPORT INFORMATION
  Report Type: 
  Country: None (occurrence: None)
  Receive Date: 20080916
  Receipt Date: 20080909
  Transmission Date: 20090109
  Serious: Yes (Other)
  Sender: FDA-Public Use
  Company Number: JP-JNJFOC-20080902767

PATIENT
  Sex: Male

DRUGS (1)
  1. RISPERDAL [Suspect]
     Indication: DRUG USE FOR UNKNOWN INDICATION
     Route: 048

REACTIONS (4)
  - ANXIETY [None]
  - DIABETES MELLITUS [None]
  - HEPATIC CIRRHOSIS [None]
  - TREMOR [None]
